FAERS Safety Report 5729570-8 (Version None)
Quarter: 2008Q2

REPORT INFORMATION
  Report Type: 
  Country: None (occurrence: None)
  Receive Date: 20080501
  Receipt Date: 20080421
  Transmission Date: 20081010
  Serious: Yes (Other)
  Sender: FDA-Public Use
  Company Number: DSU-2008-00587

PATIENT
  Age: 58 Year
  Sex: Female
  Weight: 43.5453 kg

DRUGS (7)
  1. WELCHOL [Suspect]
     Indication: HYPERCHOLESTEROLAEMIA
     Dosage: 3750 MG (1875 MG, BID), PER ORAL; 3125 MG (3 TABLETS AT LUNCH AND 2 AT DINNER), PER ORAL
     Route: 048
     Dates: start: 20041201, end: 20070801
  2. WELCHOL [Suspect]
     Indication: HYPERCHOLESTEROLAEMIA
     Dosage: 3750 MG (1875 MG, BID), PER ORAL; 3125 MG (3 TABLETS AT LUNCH AND 2 AT DINNER), PER ORAL
     Route: 048
     Dates: start: 20070801
  3. RHINOCORT [Concomitant]
  4. SEREVENT [Concomitant]
  5. FOSAMAX [Concomitant]
  6. ACTONEL [Concomitant]
  7. MULTIVITAMIN [Concomitant]

REACTIONS (3)
  - BILIARY CIRRHOSIS [None]
  - BONE DENSITY DECREASED [None]
  - WEIGHT DECREASED [None]
